FAERS Safety Report 6212930-9 (Version None)
Quarter: 2009Q2

REPORT INFORMATION
  Report Type: 
  Country: None (occurrence: None)
  Receive Date: 20090603
  Receipt Date: 20090520
  Transmission Date: 20091009
  Serious: Yes (Other)
  Sender: FDA-Public Use
  Company Number: IT-NOVOPROD-287733

PATIENT
  Age: 7 Year
  Sex: Female

DRUGS (2)
  1. NORDITROPIN [Suspect]
     Indication: GROWTH RETARDATION
     Dosage: 0.16 MG/KG/WEEK
     Dates: start: 20040201, end: 20040601
  2. NORDITROPIN [Suspect]
     Dosage: 3 MG/WEEK
     Dates: start: 20050301

REACTIONS (3)
  - BRAIN OEDEMA [None]
  - CENTRAL NERVOUS SYSTEM LESION [None]
  - CONDITION AGGRAVATED [None]
